FAERS Safety Report 13448602 (Version 1)
Quarter: 2017Q2

REPORT INFORMATION
  Report Type: Report from Study
  Country: CA (occurrence: CA)
  Receive Date: 20170417
  Receipt Date: 20170417
  Transmission Date: 20170830
  Serious: Yes (Other)
  Sender: FDA-Public Use
  Company Number: CA-JNJFOC-20170417714

PATIENT
  Sex: Male
  Weight: 108.5 kg

DRUGS (1)
  1. STELARA [Suspect]
     Active Substance: USTEKINUMAB
     Indication: CROHN^S DISEASE
     Dosage: SINGLE INJECTION
     Route: 042
     Dates: start: 20170215

REACTIONS (1)
  - Respiratory tract infection [Unknown]
